FAERS Safety Report 7647697-0 (Version None)
Quarter: 2011Q3

REPORT INFORMATION
  Report Type: 
  Country: None (occurrence: None)
  Receive Date: 20110801
  Receipt Date: 20110801
  Transmission Date: 20111222
  Serious: Yes (Other)
  Sender: FDA-Public Use
  Company Number: None

PATIENT
  Age: 42 Year
  Sex: Female
  Weight: 105.23 kg

DRUGS (1)
  1. CYMBALTA [Suspect]
     Indication: FIBROMYALGIA
     Dosage: 60 MG
     Route: 048
     Dates: start: 20110201, end: 20110723

REACTIONS (9)
  - HEADACHE [None]
  - CONDITION AGGRAVATED [None]
  - EMOTIONAL DISORDER [None]
  - INSOMNIA [None]
  - RASH [None]
  - PAIN [None]
  - CARDIAC FLUTTER [None]
  - DIZZINESS [None]
  - PARAESTHESIA [None]
